FAERS Safety Report 9324203 (Version 1)
Quarter: 2013Q2

REPORT INFORMATION
  Report Type: Spontaneous
  Country: IT (occurrence: IT)
  Receive Date: 20130603
  Receipt Date: 20130603
  Transmission Date: 20140414
  Serious: Yes (Hospitalization)
  Sender: FDA-Public Use
  Company Number: IT-TEVA-408166ISR

PATIENT
  Age: 45 Year
  Sex: Female

DRUGS (3)
  1. DIAZEPAM [Suspect]
     Dosage: 10 ML DAILY;
     Route: 048
     Dates: start: 20130427, end: 20130427
  2. SPASMOMEN SOMATICO [Suspect]
     Dosage: 200 MILLIGRAM DAILY;
     Route: 048
     Dates: start: 20130427, end: 20130427
  3. FEXOFENADINA CLORIDRATO [Concomitant]

REACTIONS (2)
  - Drug abuse [Recovered/Resolved]
  - Intentional self-injury [Recovered/Resolved]
